FAERS Safety Report 7600546-9 (Version None)
Quarter: 2011Q3

REPORT INFORMATION
  Report Type: 
  Country: None (occurrence: None)
  Receive Date: 20110711
  Receipt Date: 20110706
  Transmission Date: 20111222
  Serious: Yes (Other)
  Sender: FDA-Public Use
  Company Number: ZA-ROCHE-778361

PATIENT
  Sex: Female
  Weight: 70 kg

DRUGS (1)
  1. ACTEMRA [Suspect]
     Dosage: ROUTE: IVI; FORM: INFUSION
     Route: 042
     Dates: start: 20110503

REACTIONS (2)
  - NO THERAPEUTIC RESPONSE [None]
  - RHEUMATOID ARTHRITIS [None]
